FAERS Safety Report 6704120-8 (Version None)
Quarter: 2010Q2

REPORT INFORMATION
  Report Type: 
  Country: None (occurrence: None)
  Receive Date: 20100423
  Receipt Date: 20100217
  Transmission Date: 20101027
  Serious: No
  Sender: FDA-Public Use
  Company Number: ALL1-2010-00935

PATIENT
  Sex: Female
  Weight: 68 kg

DRUGS (1)
  1. VYVANSE [Suspect]
     Indication: DRUG USE FOR UNKNOWN INDICATION
     Dosage: 50 MG, 1X/DAY:QD, ORAL
     Route: 048
     Dates: start: 20100128, end: 20100131

REACTIONS (7)
  - ABDOMINAL PAIN UPPER [None]
  - COGNITIVE DISORDER [None]
  - DIZZINESS [None]
  - EMOTIONAL DISORDER [None]
  - FATIGUE [None]
  - IMPULSIVE BEHAVIOUR [None]
  - ORAL DISCHARGE [None]
